FAERS Safety Report 18702337 (Version 1)
Quarter: 2021Q1

REPORT INFORMATION
  Report Type: Spontaneous
  Country: US (occurrence: US)
  Receive Date: 20210105
  Receipt Date: 20210105
  Transmission Date: 20210419
  Serious: No
  Sender: FDA-Public Use
  Company Number: US-PFIZER INC-2020518905

PATIENT
  Age: 58 Year
  Sex: Male
  Weight: 95.25 kg

DRUGS (2)
  1. MYOBLOC [BOTULINUM TOXIN TYPE B] [Concomitant]
     Indication: DYSTONIA
     Dosage: UNK; (EVERY 10 WEEKS)
  2. LYRICA [Suspect]
     Active Substance: PREGABALIN
     Indication: FIBROMYALGIA
     Dosage: 75 MG, 3X/DAY
     Route: 048
     Dates: start: 2018

REACTIONS (1)
  - Pain in extremity [Unknown]
